FAERS Safety Report 7326664-0 (Version None)
Quarter: 2011Q1

REPORT INFORMATION
  Report Type: 
  Country: None (occurrence: None)
  Receive Date: 20110302
  Receipt Date: 20110224
  Transmission Date: 20110831
  Serious: Yes (Death, Other)
  Sender: FDA-Public Use
  Company Number: ES-GENZYME-FLUD-1000752

PATIENT

DRUGS (6)
  1. COTRIM [Concomitant]
     Indication: PROPHYLAXIS
     Dosage: ADMINISTERED DURING THERAPY AND UNTIL }/= 200 CD4 CELLS/MICROLITER
     Route: 048
  2. FLUDARA [Suspect]
     Indication: B-CELL LYMPHOMA
     Dosage: 25 MG/M2, QD EVERY 4 WEEKS ON DAYS 1 - 3 FOR A MAXIMUM OF 6 COURSES
     Route: 042
  3. RITUXIMAB [Suspect]
     Dosage: 375 MG/M2 IF CR OR PR IN PATIENTS,  MAINTENANCE DOSE QW FOR 4 WEEKS AND EVERY 6 MONTHS FOR 2 YEARS
     Route: 065
  4. GRANULOCYTE COLONY STIMULATING FACTOR [Concomitant]
     Indication: PROPHYLAXIS
     Dosage: GIVEN IF ANC }100 CELLS/MICROLITER OR NEUTROPHIL RECOVERY WAS }35 DAYS OR IF HX OF NEUTROPENIC FEVER
  5. RITUXIMAB [Suspect]
     Indication: B-CELL LYMPHOMA
     Dosage: 375 MG/M2, QD EVERY 4 WEEKS ON DAY 3 OF 1ST COURSE AND DAY 1 OF 2ND - 6TH COURSE
     Route: 065
  6. CYCLOPHOSPHAMIDE [Suspect]
     Indication: B-CELL LYMPHOMA
     Dosage: 1000 MG/M2, QD ON DAY 1 EVERY 4 WEEKS FOR A MAXIMUM OF 6 COURSES
     Route: 042

REACTIONS (15)
  - BACTERIAL INFECTION [None]
  - UPPER RESPIRATORY TRACT INFECTION [None]
  - HERPES ZOSTER [None]
  - CYTOMEGALOVIRUS INFECTION [None]
  - NEUTROPENIA [None]
  - CANDIDIASIS [None]
  - LYMPHOPENIA [None]
  - DIARRHOEA [None]
  - INTERSTITIAL LUNG DISEASE [None]
  - FUNGAL INFECTION [None]
  - ASPERGILLOSIS [None]
  - ANAEMIA [None]
  - INFLUENZA LIKE ILLNESS [None]
  - TOXOPLASMOSIS [None]
  - PYREXIA [None]
